FAERS Safety Report 6296197-1 (Version None)
Quarter: 2009Q3

REPORT INFORMATION
  Report Type: 
  Country: None (occurrence: None)
  Receive Date: 20090803
  Receipt Date: 20090803
  Transmission Date: 20100115
  Serious: Yes (Hospitalization)
  Sender: FDA-Public Use
  Company Number: None

PATIENT
  Age: 78 Year
  Sex: Male

DRUGS (1)
  1. NAFCILLIN SODIUM [Suspect]
     Dosage: 12 GM DAILY IV CONTINUOUS
     Route: 042
     Dates: start: 20090707, end: 20090725

REACTIONS (3)
  - BRADYCARDIA [None]
  - IMMUNE SYSTEM DISORDER [None]
  - RENAL IMPAIRMENT [None]
